FAERS Safety Report 20102674 (Version 1)
Quarter: 2021Q4

REPORT INFORMATION
  Report Type: Report from Study
  Country: US (occurrence: US)
  Receive Date: 20211123
  Receipt Date: 20211123
  Transmission Date: 20220303
  Serious: Yes (Other)
  Sender: FDA-Public Use
  Company Number: US-TAKEDA-2020TUS047097

PATIENT
  Sex: Female

DRUGS (1)
  1. HUMAN IMMUNOGLOBULIN G\HYALURONIDASE RECOMBINANT HUMAN [Suspect]
     Active Substance: HUMAN IMMUNOGLOBULIN G\HYALURONIDASE RECOMBINANT HUMAN
     Indication: Immunodeficiency common variable
     Dosage: UNK
     Route: 065

REACTIONS (14)
  - Syncope [Unknown]
  - Depressed mood [Unknown]
  - Bladder disorder [Unknown]
  - Stress [Unknown]
  - Respiratory tract congestion [Unknown]
  - Fatigue [Unknown]
  - Visual impairment [Unknown]
  - White blood cell count decreased [Unknown]
  - Stomatitis [Unknown]
  - Dysphonia [Unknown]
  - Herpes zoster [Unknown]
  - Pyrexia [Unknown]
  - Infusion site pain [Unknown]
  - Infusion site bruising [Unknown]
